FAERS Safety Report 18519202 (Version 2)
Quarter: 2021Q1

REPORT INFORMATION
  Report Type: Spontaneous
  Country: DE (occurrence: DE)
  Receive Date: 20201118
  Receipt Date: 20210225
  Transmission Date: 20210419
  Serious: Yes (Other)
  Sender: FDA-Public Use
  Company Number: DE-BIOGEN-2020BI00947931

PATIENT
  Age: 34 Year
  Sex: Female

DRUGS (6)
  1. LEVETIR ACEPAN [Concomitant]
     Indication: EPILEPSY
     Route: 065
     Dates: start: 20160915, end: 20170208
  2. TYSABRI [Suspect]
     Active Substance: NATALIZUMAB
     Indication: RELAPSING-REMITTING MULTIPLE SCLEROSIS
     Route: 042
     Dates: start: 20160414, end: 20170215
  3. DECRISTOL [Concomitant]
     Indication: VITAMIN D DEFICIENCY
     Route: 065
     Dates: start: 20111025, end: 20170215
  4. BRIMONIDIN [Concomitant]
     Indication: PRODUCT USED FOR UNKNOWN INDICATION
     Route: 065
     Dates: start: 20131121, end: 20170215
  5. VIGANTOLLETEN [Concomitant]
     Indication: VITAMIN D DEFICIENCY
     Route: 065
     Dates: start: 20111025, end: 20170215
  6. FEMIBION [Concomitant]
     Indication: PREGNANCY
     Route: 065
     Dates: start: 20160815

REACTIONS (3)
  - Abortion spontaneous [Recovered/Resolved]
  - Vaginal haemorrhage [Unknown]
  - Maternal exposure during pregnancy [Recovered/Resolved]

NARRATIVE: CASE EVENT DATE: 20170308
